FAERS Safety Report 20376808 (Version 1)
Quarter: 2022Q1

REPORT INFORMATION
  Report Type: Spontaneous
  Country: US (occurrence: US)
  Receive Date: 20220125
  Receipt Date: 20220125
  Transmission Date: 20220423
  Serious: No
  Sender: FDA-Public Use
  Company Number: US-INSUD PHARMA-2201US00216

PATIENT

DRUGS (2)
  1. FOSFOMYCIN [Suspect]
     Active Substance: FOSFOMYCIN
     Indication: Urinary tract infection
     Dosage: 1/DAY FOR 3 DAYS IN A ROW - TOOK 2ND DOSE A FEW DAYS LATE
     Route: 048
     Dates: start: 202201
  2. FOSFOMYCIN [Suspect]
     Active Substance: FOSFOMYCIN
     Dosage: SINGLE DOSE
     Route: 048
     Dates: start: 202112, end: 202112

REACTIONS (4)
  - Drug ineffective [Unknown]
  - Off label use [Unknown]
  - Product dispensing error [Unknown]
  - Inappropriate schedule of product administration [Unknown]

NARRATIVE: CASE EVENT DATE: 20211201
